FAERS Safety Report 7388541-9 (Version None)
Quarter: 2011Q2

REPORT INFORMATION
  Report Type: 
  Country: None (occurrence: None)
  Receive Date: 20110401
  Receipt Date: 20110329
  Transmission Date: 20111010
  Serious: Yes (Hospitalization)
  Sender: FDA-Public Use
  Company Number: FR-PFIZER INC-2011069177

PATIENT
  Age: 20 Year
  Sex: Female

DRUGS (2)
  1. TETRAZEPAM [Concomitant]
     Dosage: UNK
  2. CELEBREX [Suspect]
     Indication: NEURALGIA
     Dosage: UNK
     Route: 048
     Dates: start: 20090101, end: 20101213

REACTIONS (2)
  - HELICOBACTER GASTRITIS [None]
  - ABDOMINAL PAIN UPPER [None]
